FAERS Safety Report 8917391 (Version 2)
Quarter: 2013Q1

REPORT INFORMATION
  Report Type: Spontaneous
  Country: US (occurrence: US)
  Receive Date: 20121120
  Receipt Date: 20130110
  Transmission Date: 20140127
  Serious: Yes (Death, Hospitalization)
  Sender: FDA-Public Use
  Company Number: US-PFIZER INC-2012288098

PATIENT
  Age: 54 Year
  Sex: Male

DRUGS (3)
  1. INLYTA [Suspect]
     Indication: RENAL CANCER
     Dosage: TWO 1 MG TABLETS BID
     Route: 048
     Dates: start: 20120725
  2. INLYTA [Suspect]
     Dosage: 5 MG, 2X/DAY
     Route: 048
     Dates: start: 20120725
  3. INLYTA [Suspect]
     Dosage: UNK
     Route: 048
     Dates: start: 20120725

REACTIONS (3)
  - Death [Fatal]
  - Hypotension [Unknown]
  - Dehydration [Unknown]
